FAERS Safety Report 13780876 (Version 2)
Quarter: 2017Q3

REPORT INFORMATION
  Report Type: Spontaneous
  Country: US (occurrence: US)
  Receive Date: 20170724
  Receipt Date: 20170807
  Transmission Date: 20171127
  Serious: No
  Sender: FDA-Public Use
  Company Number: US-PFIZER INC-2017317797

PATIENT
  Age: 55 Year
  Sex: Female
  Weight: 46.72 kg

DRUGS (1)
  1. ADVIL [Suspect]
     Active Substance: IBUPROFEN
     Indication: HEADACHE
     Dosage: 200 MG, UNK
     Route: 048
     Dates: start: 201704, end: 2017

REACTIONS (4)
  - Dysphagia [Recovered/Resolved]
  - Product size issue [Unknown]
  - Foreign body in respiratory tract [Unknown]
  - Product use complaint [Recovered/Resolved]

NARRATIVE: CASE EVENT DATE: 2017
